FAERS Safety Report 4300782-3 (Version None)
Quarter: 2004Q1

REPORT INFORMATION
  Report Type: 
  Country: None (occurrence: None)
  Receive Date: 20040218
  Receipt Date: 20040203
  Transmission Date: 20041129
  Serious: Yes (Hospitalization)
  Sender: FDA-Public Use
  Company Number: 2003IM001158

PATIENT
  Age: 73 Year
  Sex: Female
  Weight: 117.9352 kg

DRUGS (21)
  1. ACTIMMUNE [Suspect]
     Indication: HEPATIC CIRRHOSIS
     Dosage: 100 UG; TIW; SUBCUTANEOUS
     Route: 058
     Dates: start: 20021024, end: 20030812
  2. ACTIMMUNE [Suspect]
     Indication: HEPATIC FIBROSIS
     Dosage: 100 UG; TIW; SUBCUTANEOUS
     Route: 058
     Dates: start: 20021024, end: 20030812
  3. ACTIMMUNE [Suspect]
     Indication: HEPATITIS C VIRUS
     Dosage: 100 UG; TIW; SUBCUTANEOUS
     Route: 058
     Dates: start: 20021024, end: 20030812
  4. KENALOG [Concomitant]
  5. MARKINE [Concomitant]
  6. POTASSIUM CHLORIDE [Concomitant]
  7. ACETAMINOPHEN [Concomitant]
  8. IBUPROFEN [Concomitant]
  9. PEPCID [Concomitant]
  10. TEMAZEPAM [Concomitant]
  11. KEFLEX [Concomitant]
  12. AZYTHROMAX [Concomitant]
  13. PROMETHAZINE [Concomitant]
  14. PREDNISONE [Concomitant]
  15. MEGACE [Concomitant]
  16. LEVAQUIN [Concomitant]
  17. ALBUTEROL [Concomitant]
  18. FUROSEMIDE [Concomitant]
  19. LEVOTHYROXINE SODIUM [Concomitant]
  20. CARDIZEM [Concomitant]
  21. OXYCODONE HCL [Concomitant]

REACTIONS (2)
  - ASTHMA [None]
  - CARDIAC FAILURE CONGESTIVE [None]
